FAERS Safety Report 22270099 (Version 1)
Quarter: 2023Q2

REPORT INFORMATION
  Report Type: Spontaneous
  Country: US (occurrence: None)
  Receive Date: 20230428
  Receipt Date: 20230428
  Transmission Date: 20230722
  Serious: Yes (Hospitalization)
  Sender: FDA-Public Use
  Company Number: None

PATIENT
  Age: 63 Year
  Sex: Female
  Weight: 78.5 kg

DRUGS (1)
  1. HECTOROL [Suspect]
     Active Substance: DOXERCALCIFEROL
     Indication: Secondary hyperthyroidism
     Dosage: FREQUENCY : ONCE;?
     Route: 040
     Dates: start: 20230419, end: 20230419

REACTIONS (5)
  - Unresponsive to stimuli [None]
  - Pulse absent [None]
  - Respiratory arrest [None]
  - Drug hypersensitivity [None]
  - Dyspnoea [None]

NARRATIVE: CASE EVENT DATE: 20230419
